FAERS Safety Report 4801450-1 (Version None)
Quarter: 2005Q4

REPORT INFORMATION
  Report Type: 
  Country: None (occurrence: None)
  Receive Date: 20051011
  Receipt Date: 20050927
  Transmission Date: 20060501
  Serious: Yes (Other)
  Sender: FDA-Public Use
  Company Number: 2005134940

PATIENT
  Age: 39 Year
  Sex: Male
  Weight: 78.4723 kg

DRUGS (7)
  1. NORVASC [Suspect]
     Indication: BLOOD PRESSURE
     Dosage: (2.5 MG)
     Dates: start: 20010101
  2. LIPITOR [Suspect]
     Indication: BLOOD CHOLESTEROL
     Dates: start: 20010101, end: 20020101
  3. ZOCOR [Suspect]
     Indication: BLOOD CHOLESTEROL
     Dates: start: 20020101
  4. AVAPRO [Concomitant]
  5. CLONIDINE [Concomitant]
  6. INSULIN [Concomitant]
  7. NEPHROCAPS (FOLIC ACID, VITAMINS NOS) [Concomitant]

REACTIONS (4)
  - IMPAIRED HEALING [None]
  - INFECTED SKIN ULCER [None]
  - OSTEOMYELITIS [None]
  - STAPHYLOCOCCAL INFECTION [None]
